FAERS Safety Report 9994957 (Version 2)
Quarter: 2014Q1

REPORT INFORMATION
  Report Type: Spontaneous
  Country: US (occurrence: None)
  Receive Date: 20140306
  Receipt Date: 20140313
  Transmission Date: 20141002
  Serious: Yes (Hospitalization)
  Sender: FDA-Public Use
  Company Number: AUR-APL-2014-02351

PATIENT
  Age: 35 Year
  Sex: Male

DRUGS (4)
  1. AMLODIPINE (AMLODIPINE) [Suspect]
     Indication: PRODUCT USED FOR UNKNOWN INDICATION
     Dosage: (30 DOSAGE FORMS), UNKNOWN
  2. METOPROLOL (METOPROLOL) [Suspect]
     Indication: PRODUCT USED FOR UNKNOWN INDICATION
     Dosage: (47 DOSAGE FORMS), UNKNOWN
  3. VERAPAMIL (VERAPAMIL) [Suspect]
     Indication: PRODUCT USED FOR UNKNOWN INDICATION
     Dosage: (57 DOSAGE FORMS), UNKNOWN
  4. INSULIN (INSULIN) [Concomitant]

REACTIONS (7)
  - Pulseless electrical activity [None]
  - Shock [None]
  - Sinus bradycardia [None]
  - Renal failure acute [None]
  - Hyperkalaemia [None]
  - Lactic acidosis [None]
  - Hypoglycaemia [None]
